FAERS Safety Report 14627637 (Version 4)
Quarter: 2018Q4

REPORT INFORMATION
  Report Type: Spontaneous
  Country: JP (occurrence: JP)
  Receive Date: 20180312
  Receipt Date: 20181016
  Transmission Date: 20190204
  Serious: Yes (Life-Threatening, Hospitalization, Other)
  Sender: FDA-Public Use
  Company Number: JP-PFIZER INC-2018092945

PATIENT
  Age: 4 Year
  Sex: Male
  Weight: 20 kg

DRUGS (1)
  1. GENOTROPIN GOQUICK 5.3MG [Suspect]
     Active Substance: SOMATROPIN
     Indication: PRADER-WILLI SYNDROME
     Dosage: 0.4 MG, DAILY
     Route: 058
     Dates: start: 20170629, end: 20171210

REACTIONS (8)
  - Acute respiratory failure [Recovered/Resolved]
  - Sleep apnoea syndrome [Recovered/Resolved]
  - Pharyngotonsillitis [Unknown]
  - Bronchiolitis [Unknown]
  - Pickwickian syndrome [Unknown]
  - Cardiac failure acute [Recovered/Resolved]
  - Obesity [Unknown]
  - Hepatic failure [Recovered/Resolved]

NARRATIVE: CASE EVENT DATE: 20171210
